FAERS Safety Report 10643367 (Version 1)
Quarter: 2014Q4

REPORT INFORMATION
  Report Type: Spontaneous
  Country: US (occurrence: None)
  Receive Date: 20141128
  Receipt Date: 20141128
  Transmission Date: 20150529
  Serious: Yes (Hospitalization)
  Sender: FDA-Public Use
  Company Number: PHHY2014US071579

PATIENT
  Age: 76 Year
  Sex: Female
  Weight: 61.2 kg

DRUGS (12)
  1. VITAMIN B12 [Concomitant]
     Active Substance: CYANOCOBALAMIN
  2. TRAMADOL (TRAMADOL) [Concomitant]
     Active Substance: TRAMADOL
  3. HYDROCHLOROTHIAZIDE (HYDROCHLOROTHIAZIDE) [Concomitant]
     Active Substance: HYDROCHLOROTHIAZIDE
  4. GEMFIBROZIL (GEMFIBROZIL) [Concomitant]
     Active Substance: GEMFIBROZIL
  5. METAMUCIL (PLANTAGO OVATA) [Concomitant]
  6. DICLOFENAC [Suspect]
     Active Substance: DICLOFENAC
     Indication: ARTHRITIS
     Dosage: 75 MG, BID, ORAL
     Route: 048
     Dates: start: 2013, end: 20140429
  7. ASPIRIN (ACETYLSALICYLIC ACID) [Suspect]
     Active Substance: ASPIRIN
     Indication: CARDIOVASCULAR DISORDER
     Route: 048
     Dates: start: 20081120, end: 20140429
  8. NEXIUM/ESOMEPRAZOLE SODIUM (ESOMEPRAZOLE SODIUM) [Concomitant]
  9. ASPIRIN (ACETYLSALICYLIC ACID) [Suspect]
     Active Substance: ASPIRIN
     Indication: PROPHYLAXIS
     Route: 048
     Dates: start: 20081120, end: 20140429
  10. AMLODIPINE (AMLODIPINE)? [Concomitant]
  11. CITALOPRAM (CITALOPRAM) [Concomitant]
     Active Substance: CITALOPRAM HYDROBROMIDE
  12. BENAZEPRIL [Concomitant]
     Active Substance: BENAZEPRIL\BENAZEPRIL HYDROCHLORIDE

REACTIONS (10)
  - Mental disorder [None]
  - Melaena [None]
  - Haematochezia [None]
  - Haemoglobin decreased [None]
  - Hypotension [None]
  - Diarrhoea [None]
  - Abdominal pain upper [None]
  - Gastrointestinal haemorrhage [None]
  - Duodenal ulcer [None]
  - Vomiting [None]

NARRATIVE: CASE EVENT DATE: 20140429
